FAERS Safety Report 22079211 (Version 1)
Quarter: 2023Q1

REPORT INFORMATION
  Report Type: Report from Study
  Country: MX (occurrence: MX)
  Receive Date: 20230309
  Receipt Date: 20230309
  Transmission Date: 20230418
  Serious: Yes (Death)
  Sender: FDA-Public Use
  Company Number: MX-002147023-NVSC2023MX049949

PATIENT
  Sex: Female

DRUGS (4)
  1. VOTRIENT [Suspect]
     Active Substance: PAZOPANIB HYDROCHLORIDE
     Indication: Renal cancer
     Dosage: 1 DOSAGE FORM, QD (FIRST WEEK)
     Route: 048
     Dates: start: 2022
  2. VOTRIENT [Suspect]
     Active Substance: PAZOPANIB HYDROCHLORIDE
     Dosage: 2 DOSAGE FORM, QD (SECOND WEEK)
     Route: 048
  3. VOTRIENT [Suspect]
     Active Substance: PAZOPANIB HYDROCHLORIDE
     Dosage: 3 DOSAGE FORM, QD (THIRD WEEK)
     Route: 048
  4. VOTRIENT [Suspect]
     Active Substance: PAZOPANIB HYDROCHLORIDE
     Dosage: 4 DOSAGE FORM, QD (FOURTH WEEK)
     Route: 048

REACTIONS (1)
  - Renal cancer [Fatal]
